FAERS Safety Report 10217967 (Version 2)
Quarter: 2014Q2

REPORT INFORMATION
  Report Type: Spontaneous
  Country: US (occurrence: US)
  Receive Date: 20140605
  Receipt Date: 20140620
  Transmission Date: 20141212
  Serious: Yes (Hospitalization)
  Sender: FDA-Public Use
  Company Number: US-BIOGENIDEC-2014BI051075

PATIENT
  Age: 58 Year
  Sex: Male

DRUGS (4)
  1. TECFIDERA [Suspect]
     Indication: MULTIPLE SCLEROSIS
     Route: 048
     Dates: start: 20140314
  2. DONEPEZIL HCL [Concomitant]
  3. HYDROCODONE-ACETAMINOPHEN [Concomitant]
  4. TAMSULOSIN HCL [Concomitant]

REACTIONS (3)
  - Multiple sclerosis relapse [Unknown]
  - Abasia [Unknown]
  - Pain [Unknown]
